FAERS Safety Report 8896646 (Version 1)
Quarter: 2012Q4

REPORT INFORMATION
  Report Type: Spontaneous
  Country: US (occurrence: None)
  Receive Date: 20121107
  Receipt Date: 20121107
  Transmission Date: 20130627
  Serious: Yes (Other)
  Sender: FDA-Public Use
  Company Number: None

PATIENT
  Age: 87 Year
  Sex: Male
  Weight: 48.99 kg

DRUGS (1)
  1. JANUVIA TABLETS 100MG [Suspect]
     Indication: BLOOD GLUCOSE
     Dosage: 1 tablet daily

REACTIONS (2)
  - Deafness unilateral [None]
  - Deafness transitory [None]
